FAERS Safety Report 9187763 (Version 1)
Quarter: 2013Q1

REPORT INFORMATION
  Report Type: Spontaneous
  Country: US (occurrence: US)
  Receive Date: 20130325
  Receipt Date: 20130325
  Transmission Date: 20140127
  Serious: No
  Sender: FDA-Public Use
  Company Number: US-MYLANLABS-2012S1006956

PATIENT
  Age: 55 Year
  Sex: Female

DRUGS (2)
  1. FENTANYL TRANSDERMAL SYSTEM [Suspect]
     Dosage: Q3D
     Route: 062
  2. AMITRIPTYLINE [Concomitant]
     Indication: DEPRESSION
     Route: 048
     Dates: start: 1996

REACTIONS (2)
  - Drug withdrawal syndrome [Not Recovered/Not Resolved]
  - Muscle tightness [Not Recovered/Not Resolved]
